FAERS Safety Report 6394120-2 (Version None)
Quarter: 2009Q4

REPORT INFORMATION
  Report Type: 
  Country: None (occurrence: None)
  Receive Date: 20091008
  Receipt Date: 20090928
  Transmission Date: 20100525
  Serious: Yes (Life-Threatening)
  Sender: FDA-Public Use
  Company Number: FR-PFIZER INC-2009274497

PATIENT
  Age: 76 Year

DRUGS (3)
  1. AMLOR [Suspect]
     Dosage: 10 MG, 1X/DAY
     Route: 048
  2. PREVISCAN [Suspect]
     Dosage: 20 MG, 1X/DAY
     Route: 048
     Dates: start: 20070401, end: 20090813
  3. BISOPROLOL FUMARATE [Suspect]
     Dosage: 1 DF, 1X/DAY
     Route: 048

REACTIONS (2)
  - CYTOLYTIC HEPATITIS [None]
  - RENAL FAILURE [None]
